FAERS Safety Report 4602453-2 (Version None)
Quarter: 2005Q1

REPORT INFORMATION
  Report Type: 
  Country: None (occurrence: None)
  Receive Date: 20050309
  Receipt Date: 20050224
  Transmission Date: 20050727
  Serious: Yes (Hospitalization)
  Sender: FDA-Public Use
  Company Number: FR-JNJFOC-20050205875

PATIENT
  Age: 43 Year
  Sex: Male

DRUGS (3)
  1. HALDOL [Suspect]
     Indication: PERSECUTORY DELUSION
     Route: 049
     Dates: start: 20040415, end: 20040928
  2. LEPTICUR [Suspect]
     Indication: DRUG USE FOR UNKNOWN INDICATION
     Route: 049
  3. TRANXENE [Suspect]
     Indication: DRUG USE FOR UNKNOWN INDICATION
     Route: 049

REACTIONS (9)
  - BRADYPHRENIA [None]
  - DRUG INTERACTION [None]
  - DYSPHONIA [None]
  - EYELID PTOSIS [None]
  - HYPERHIDROSIS [None]
  - HYPERTONIA [None]
  - RHABDOMYOLYSIS [None]
  - SYNCOPE [None]
  - TREMOR [None]
